FAERS Safety Report 8417927 (Version 3)
Quarter: 2013Q2

REPORT INFORMATION
  Report Type: Spontaneous
  Country: US (occurrence: US)
  Receive Date: 20120221
  Receipt Date: 20130422
  Transmission Date: 20140414
  Serious: Yes (Hospitalization, Other)
  Sender: FDA-Public Use
  Company Number: US-PFIZER INC-2012043052

PATIENT
  Age: 47 Year
  Sex: Female
  Weight: 93.42 kg

DRUGS (4)
  1. NORVASC [Suspect]
     Indication: HYPERTENSION
     Dosage: 10 MG, 1X/DAY
  2. NORVASC [Suspect]
     Dosage: UNK, 1X/DAY
     Dates: start: 2009
  3. NORVASC [Suspect]
     Dosage: UNK, EVERY THIRD DAY
     Dates: start: 2009
  4. CYMBALTA [Concomitant]
     Indication: DEPRESSION
     Dosage: UNK

REACTIONS (6)
  - Intentional drug misuse [Unknown]
  - Cerebrovascular accident [Recovered/Resolved]
  - Nervous system disorder [Unknown]
  - Hypotension [Unknown]
  - Neuropathy peripheral [Not Recovered/Not Resolved]
  - Gastritis [Not Recovered/Not Resolved]
